FAERS Safety Report 19820102 (Version 4)
Quarter: 2021Q4

REPORT INFORMATION
  Report Type: Other
  Country: CA (occurrence: CA)
  Receive Date: 20210913
  Receipt Date: 20211004
  Transmission Date: 20220303
  Serious: Yes (Hospitalization, Other)
  Sender: FDA-Public Use
  Company Number: CA-APOTEX-2021AP042487

PATIENT
  Sex: Male

DRUGS (1)
  1. DASATINIB [Suspect]
     Active Substance: DASATINIB
     Indication: Leukaemia
     Dosage: 70 MILLIGRAM, ONCE A DAY 2 XDAILY
     Route: 048
     Dates: start: 20200531

REACTIONS (3)
  - Hospitalisation [Recovered/Resolved]
  - Bell^s palsy [Not Recovered/Not Resolved]
  - Malaise [Not Recovered/Not Resolved]
